FAERS Safety Report 13989492 (Version 2)
Quarter: 2017Q3

REPORT INFORMATION
  Report Type: Report from Study
  Country: US (occurrence: US)
  Receive Date: 20170920
  Receipt Date: 20170926
  Transmission Date: 20171128
  Serious: No
  Sender: FDA-Public Use
  Company Number: US-AMGEN-USASL2017141734

PATIENT
  Age: 71 Year
  Sex: Female

DRUGS (1)
  1. ENBREL [Suspect]
     Active Substance: ETANERCEPT
     Indication: RHEUMATOID ARTHRITIS
     Dosage: 50 MG, QWK
     Route: 065
     Dates: start: 201709

REACTIONS (12)
  - Dry mouth [Unknown]
  - Eye irritation [Unknown]
  - Dry throat [Unknown]
  - Injury corneal [Unknown]
  - Dry eye [Unknown]
  - Lip exfoliation [Unknown]
  - Corrective lens user [Unknown]
  - Dysphonia [Unknown]
  - Raynaud^s phenomenon [Not Recovered/Not Resolved]
  - Fatigue [Unknown]
  - Eye complication associated with device [Unknown]
  - Hypersomnia [Unknown]

NARRATIVE: CASE EVENT DATE: 201709
